FAERS Safety Report 9032230 (Version 1)
Quarter: 2013Q1

REPORT INFORMATION
  Report Type: Spontaneous
  Country: US (occurrence: US)
  Receive Date: 20130122
  Receipt Date: 20130122
  Transmission Date: 20140127
  Serious: Yes (Hospitalization, Other)
  Sender: FDA-Public Use
  Company Number: US-TEVA-312682USA

PATIENT
  Sex: Female

DRUGS (2)
  1. COPAXONE [Suspect]
     Indication: RELAPSING-REMITTING MULTIPLE SCLEROSIS
     Dosage: 20 MILLIGRAM DAILY;
     Route: 058
  2. UNKNOWN STEROIDS [Concomitant]

REACTIONS (3)
  - Gait disturbance [Recovered/Resolved]
  - Injection site injury [Unknown]
  - Multiple sclerosis relapse [Unknown]
